FAERS Safety Report 15350944 (Version 4)
Quarter: 2018Q4

REPORT INFORMATION
  Report Type: Spontaneous
  Country: US (occurrence: US)
  Receive Date: 20180905
  Receipt Date: 20181126
  Transmission Date: 20190204
  Serious: Yes (Hospitalization)
  Sender: FDA-Public Use
  Company Number: US-BIOGEN-2018BI00626975

PATIENT
  Age: 62 Year
  Sex: Male

DRUGS (2)
  1. PLEGRIDY [Suspect]
     Active Substance: PEGINTERFERON BETA-1A
     Indication: MULTIPLE SCLEROSIS
     Dosage: STARTER DOSE
     Route: 065
     Dates: start: 20180307, end: 20180613
  2. PLEGRIDY [Suspect]
     Active Substance: PEGINTERFERON BETA-1A
     Dosage: FULL DOSE
     Route: 065

REACTIONS (2)
  - Clostridium colitis [Recovered/Resolved]
  - Influenza like illness [Unknown]

NARRATIVE: CASE EVENT DATE: 20180617
